FAERS Safety Report 23577864 (Version 2)
Quarter: 2024Q2

REPORT INFORMATION
  Report Type: Report from Study
  Country: GB (occurrence: GB)
  Receive Date: 20240228
  Receipt Date: 20240607
  Transmission Date: 20240716
  Serious: Yes (Other)
  Sender: FDA-Public Use
  Company Number: GB-SANDOZ-SDZ2023GB031333

PATIENT
  Sex: Female

DRUGS (1)
  1. HYRIMOZ [Suspect]
     Active Substance: ADALIMUMAB-ADAZ
     Indication: Rheumatoid arthritis
     Dosage: 40 MG, Q2W
     Route: 058
     Dates: start: 20230814

REACTIONS (7)
  - Abortion of ectopic pregnancy [Unknown]
  - Abortion spontaneous [Unknown]
  - Illness [Unknown]
  - Hormone level abnormal [Unknown]
  - Exposure during pregnancy [Unknown]
  - Alopecia [Unknown]
  - Pharyngitis streptococcal [Unknown]
